FAERS Safety Report 8289169-9 (Version None)
Quarter: 2012Q2

REPORT INFORMATION
  Report Type: 
  Country: None (occurrence: None)
  Receive Date: 20120417
  Receipt Date: 20120404
  Transmission Date: 20120825
  Serious: Yes (Hospitalization)
  Sender: FDA-Public Use
  Company Number: PHHY2012EC028758

PATIENT
  Sex: Female

DRUGS (1)
  1. DIOVAN [Suspect]
     Indication: HYPERTENSION
     Dosage: 160 MG 1 TABLET DAILY
     Route: 048
     Dates: start: 20100826

REACTIONS (3)
  - BLOOD PRESSURE FLUCTUATION [None]
  - DIZZINESS [None]
  - NEPHROPATHY [None]
